FAERS Safety Report 6388213-3 (Version None)
Quarter: 2009Q4

REPORT INFORMATION
  Report Type: 
  Country: None (occurrence: None)
  Receive Date: 20091001
  Receipt Date: 20091001
  Transmission Date: 20100525
  Serious: Yes (Other)
  Sender: FDA-Public Use
  Company Number: None

PATIENT
  Sex: Male
  Weight: 83.9154 kg

DRUGS (1)
  1. PREDNISONE TAB [Suspect]
     Indication: HEPATIC ENZYME INCREASED
     Dosage: 2 TABLETS ONCE PER DAY
     Dates: start: 20090505

REACTIONS (8)
  - ABDOMINAL DISTENSION [None]
  - DIARRHOEA [None]
  - DYSPNOEA [None]
  - FLATULENCE [None]
  - HEART RATE IRREGULAR [None]
  - MYALGIA [None]
  - PAIN [None]
  - PALPITATIONS [None]
